FAERS Safety Report 5422171-0 (Version None)
Quarter: 2007Q3

REPORT INFORMATION
  Report Type: 
  Country: None (occurrence: None)
  Receive Date: 20070820
  Receipt Date: 20070814
  Transmission Date: 20080115
  Serious: Yes (Hospitalization)
  Sender: FDA-Public Use
  Company Number: 167-C5013-07080755

PATIENT
  Age: 44 Year
  Sex: Male

DRUGS (2)
  1. CC-5013 (LENALIDOMIDE) (CAPSULES) [Suspect]
     Indication: MYELOMA RECURRENCE
     Dosage: 25 MG, DAILY, ORAL
     Route: 048
     Dates: start: 20070807, end: 20070813
  2. DEXAMETHASONE TAB [Suspect]
     Indication: MYELOMA RECURRENCE
     Dosage: ORAL
     Route: 048

REACTIONS (1)
  - ILEUS [None]
